APPROVED DRUG PRODUCT: AMANTADINE HYDROCHLORIDE
Active Ingredient: AMANTADINE HYDROCHLORIDE
Strength: 100MG
Dosage Form/Route: TABLET;ORAL
Application: A207571 | Product #001
Applicant: INVAGEN PHARMACEUTICALS INC
Approved: Jan 31, 2017 | RLD: No | RS: No | Type: DISCN